FAERS Safety Report 9171266 (Version 1)
Quarter: 2013Q1

REPORT INFORMATION
  Report Type: Spontaneous
  Country: US (occurrence: None)
  Receive Date: 20130318
  Receipt Date: 20130318
  Transmission Date: 20140127
  Serious: Yes (Hospitalization, Other)
  Sender: FDA-Public Use
  Company Number: None

PATIENT
  Age: 46 Year
  Sex: Male

DRUGS (1)
  1. STIVARGA, 40 MG, BAYER [Suspect]
     Indication: RECTAL CANCER
     Dosage: 3 UD KOFFT
     Route: 048
     Dates: start: 20131202

REACTIONS (6)
  - Nausea [None]
  - Vomiting [None]
  - Fatigue [None]
  - Muscle spasms [None]
  - Pyrexia [None]
  - Drug dose omission [None]
